FAERS Safety Report 7350981-1 (Version None)
Quarter: 2011Q1

REPORT INFORMATION
  Report Type: 
  Country: None (occurrence: None)
  Receive Date: 20110314
  Receipt Date: 20110308
  Transmission Date: 20110831
  Serious: Yes (Hospitalization)
  Sender: FDA-Public Use
  Company Number: FR-PFIZER INC-2011050177

PATIENT
  Age: 75 Year
  Sex: Male

DRUGS (9)
  1. EFFEXOR [Concomitant]
     Indication: MAJOR DEPRESSION
     Dosage: 37.5 MG, 2X/DAY
     Route: 048
  2. LEXOMIL [Concomitant]
     Indication: ANXIOLYTIC THERAPY
     Dosage: 12 MG, 1X/DAY
     Route: 048
  3. KARDEGIC [Concomitant]
     Dosage: 75 MG, 1X/DAY
     Route: 048
  4. EQUANIL [Concomitant]
     Indication: ALCOHOLISM
     Dosage: 250 MG, 2X/DAY
     Route: 048
  5. ZOPICLONE [Concomitant]
     Dosage: 7.5 MG, 1X/DAY
     Route: 048
  6. TAHOR [Suspect]
     Indication: HYPERCHOLESTEROLAEMIA
     Dosage: 10 MG, 1X/DAY
     Route: 048
     Dates: start: 20100906, end: 20100914
  7. EZETROL [Concomitant]
     Indication: HYPERCHOLESTEROLAEMIA
     Dosage: 10 MG, 1X/DAY
     Route: 048
     Dates: end: 20100906
  8. ATARAX [Concomitant]
     Indication: BENIGN PROSTATIC HYPERPLASIA
     Dosage: 25 MG, 1X/DAY
     Route: 048
  9. ADANCOR [Concomitant]
     Indication: CORONARY ARTERY DISEASE
     Dosage: 20 MG, 2X/DAY
     Route: 048

REACTIONS (5)
  - AGITATION [None]
  - BLOOD CREATININE INCREASED [None]
  - AGGRESSION [None]
  - CONFUSIONAL STATE [None]
  - RHABDOMYOLYSIS [None]
